FAERS Safety Report 8482722-9 (Version None)
Quarter: 2012Q3

REPORT INFORMATION
  Report Type: 
  Country: None (occurrence: None)
  Receive Date: 20120702
  Receipt Date: 20120625
  Transmission Date: 20120928
  Serious: Yes (Other)
  Sender: FDA-Public Use
  Company Number: US-JNJFOC-20120612444

PATIENT
  Sex: Male

DRUGS (1)
  1. STELARA [Suspect]
     Indication: PSORIASIS
     Route: 058
     Dates: start: 20120615

REACTIONS (5)
  - FATIGUE [None]
  - OROPHARYNGEAL PAIN [None]
  - ASTHMA [None]
  - PSORIASIS [None]
  - HEADACHE [None]
